FAERS Safety Report 19484533 (Version 1)
Quarter: 2021Q3

REPORT INFORMATION
  Report Type: Spontaneous
  Country: US (occurrence: US)
  Receive Date: 20210701
  Receipt Date: 20210701
  Transmission Date: 20211014
  Serious: No
  Sender: FDA-Public Use
  Company Number: US-BEH-2021133536

PATIENT
  Age: 40 Year
  Sex: Female

DRUGS (8)
  1. AUBAGIO [Concomitant]
     Active Substance: TERIFLUNOMIDE
  2. SUMATRIPTAN. [Concomitant]
     Active Substance: SUMATRIPTAN
  3. BACLOFEN. [Concomitant]
     Active Substance: BACLOFEN
  4. FISH OIL [Concomitant]
     Active Substance: FISH OIL
  5. LORAZEPAM. [Concomitant]
     Active Substance: LORAZEPAM
  6. HIZENTRA [Suspect]
     Active Substance: HUMAN IMMUNOGLOBULIN G
     Indication: IMMUNODEFICIENCY COMMON VARIABLE
     Dosage: 40 GRAM, EVERY10DAYS
     Route: 058
     Dates: start: 20210212
  7. VITAMIN D3 [Concomitant]
     Active Substance: CHOLECALCIFEROL
  8. XIIDRA [Concomitant]
     Active Substance: LIFITEGRAST

REACTIONS (1)
  - Sinusitis [Not Recovered/Not Resolved]

NARRATIVE: CASE EVENT DATE: 202106
